FAERS Safety Report 4317010-5 (Version None)
Quarter: 2004Q1

REPORT INFORMATION
  Report Type: 
  Country: None (occurrence: None)
  Receive Date: 20040315
  Receipt Date: 20040301
  Transmission Date: 20041129
  Serious: Yes (Hospitalization)
  Sender: FDA-Public Use
  Company Number: 04P-163-0251928-00

PATIENT
  Age: 68 Year
  Sex: Male

DRUGS (4)
  1. DEPAKOTE [Suspect]
     Indication: BIPOLAR II DISORDER
     Dosage: SEE IMAGE
     Dates: start: 20030101, end: 20031001
  2. DEPAKOTE [Suspect]
     Indication: BIPOLAR II DISORDER
     Dosage: SEE IMAGE
     Dates: start: 20031001
  3. DEXCHLORPHENIRAMINE MELEATE [Concomitant]
  4. RAMIPRIL [Concomitant]

REACTIONS (4)
  - CYTOMEGALOVIRUS ANTIBODY POSITIVE [None]
  - HIP FRACTURE [None]
  - MYOCARDITIS [None]
  - RESPIRATORY TRACT INFECTION [None]
